FAERS Safety Report 20407516 (Version 1)
Quarter: 2022Q1

REPORT INFORMATION
  Report Type: Spontaneous
  Country: SK (occurrence: SK)
  Receive Date: 20220131
  Receipt Date: 20220131
  Transmission Date: 20220423
  Serious: Yes (Death)
  Sender: FDA-Public Use
  Company Number: SK-002147023-NVSC2022SK017305

PATIENT
  Age: 65 Year
  Sex: Female

DRUGS (4)
  1. XOLAIR [Suspect]
     Active Substance: OMALIZUMAB
     Indication: Asthma
     Dosage: UNK
     Route: 065
     Dates: start: 20060712, end: 20211215
  2. FOSTER [Concomitant]
     Active Substance: BECLOMETHASONE\FORMOTEROL
     Indication: Asthma
     Dosage: 180/6/200 BID (BASED ON NEED)
     Route: 065
  3. MOMETASONE [Concomitant]
     Active Substance: MOMETASONE
     Indication: Asthma
     Dosage: UNK, BID (BASED ON NEED)
     Route: 065
  4. ATROVENT [Concomitant]
     Active Substance: IPRATROPIUM BROMIDE
     Indication: Asthma
     Dosage: 3 TIMES 2 A DAY
     Route: 065

REACTIONS (2)
  - COVID-19 pneumonia [Fatal]
  - Respiratory failure [Fatal]

NARRATIVE: CASE EVENT DATE: 20211215
